FAERS Safety Report 6673686-9 (Version None)
Quarter: 2010Q2

REPORT INFORMATION
  Report Type: 
  Country: None (occurrence: None)
  Receive Date: 20100408
  Receipt Date: 20100325
  Transmission Date: 20101027
  Serious: Yes (Hospitalization)
  Sender: FDA-Public Use
  Company Number: GB-AMGEN-US402589

PATIENT
  Sex: Male
  Weight: 93 kg

DRUGS (4)
  1. ENBREL [Suspect]
     Indication: RHEUMATOID ARTHRITIS
     Route: 058
     Dates: start: 20050115, end: 20071115
  2. PREDNISOLONE [Concomitant]
     Dosage: UNKNOWN
  3. METHOTREXATE [Concomitant]
     Dosage: UNKNOWN
  4. METHOTREXATE [Concomitant]
     Dosage: 15MG, FREQUENCY UNKNOWN (TO INCREASE ONCE SEPTRIN FINISHED)

REACTIONS (3)
  - KNEE ARTHROPLASTY [None]
  - PNEUMOCYSTIS JIROVECI PNEUMONIA [None]
  - PYOTHORAX [None]
